FAERS Safety Report 16547020 (Version 2)
Quarter: 2019Q3

REPORT INFORMATION
  Report Type: Report from Study
  Country: CA (occurrence: CA)
  Receive Date: 20190709
  Receipt Date: 20190719
  Transmission Date: 20191004
  Serious: Yes (Life-Threatening)
  Sender: FDA-Public Use
  Company Number: PHHY2019CA157936

PATIENT
  Age: 24 Year
  Sex: Female
  Weight: 67 kg

DRUGS (2)
  1. TRAMETINIB [Suspect]
     Active Substance: TRAMETINIB
     Indication: NEUROFIBROMA
     Dosage: 2 MG, UNK
     Route: 048
     Dates: start: 20181024, end: 20190625
  2. TRAMETINIB [Suspect]
     Active Substance: TRAMETINIB
     Dosage: LOWER DOSE
     Route: 048

REACTIONS (5)
  - Rash [Unknown]
  - Neurofibrosarcoma [Not Recovered/Not Resolved]
  - Musculoskeletal pain [Unknown]
  - Second primary malignancy [Not Recovered/Not Resolved]
  - Flank pain [Unknown]

NARRATIVE: CASE EVENT DATE: 20190404
